FAERS Safety Report 6662679-3 (Version None)
Quarter: 2010Q2

REPORT INFORMATION
  Report Type: 
  Country: None (occurrence: None)
  Receive Date: 20100401
  Receipt Date: 20100323
  Transmission Date: 20101027
  Serious: Yes (Hospitalization)
  Sender: FDA-Public Use
  Company Number: US-BIOGENIDEC-2009BI031456

PATIENT
  Age: 52 Year
  Sex: Female

DRUGS (1)
  1. TYSABRI [Suspect]
     Indication: MULTIPLE SCLEROSIS
     Route: 042
     Dates: start: 20070913, end: 20090801

REACTIONS (7)
  - ASTHENIA [None]
  - BACK DISORDER [None]
  - BODY TEMPERATURE DECREASED [None]
  - MYELODYSPLASTIC SYNDROME [None]
  - ORAL HERPES [None]
  - POOR VENOUS ACCESS [None]
  - PYREXIA [None]
